FAERS Safety Report 13516842 (Version 1)
Quarter: 2017Q2

REPORT INFORMATION
  Report Type: Report from Study
  Country: US (occurrence: US)
  Receive Date: 20170505
  Receipt Date: 20170505
  Transmission Date: 20170830
  Serious: Yes (Other)
  Sender: FDA-Public Use
  Company Number: US-BEH-2017080142

PATIENT
  Age: 36 Year
  Sex: Female

DRUGS (9)
  1. ALBUMINAR-5 [Suspect]
     Active Substance: ALBUMIN HUMAN
     Indication: CYTOMEGALOVIRUS INFECTION
     Dosage: 178 ML, QMT
     Route: 042
     Dates: start: 20161216, end: 20170407
  2. BLINDED ALBUMIN 5% [Suspect]
     Active Substance: ALBUMIN HUMAN
     Dosage: UNK
     Route: 042
  3. ALBUMINAR-5 [Suspect]
     Active Substance: ALBUMIN HUMAN
     Dosage: UNK
     Route: 064
  4. CYTOGAM [Suspect]
     Active Substance: HUMAN CYTOMEGALOVIRUS IMMUNE GLOBULIN
     Dosage: UNK
     Route: 064
  5. CYTOGAM [Suspect]
     Active Substance: HUMAN CYTOMEGALOVIRUS IMMUNE GLOBULIN
     Indication: CYTOMEGALOVIRUS INFECTION
     Dosage: 178 ML, QMT
     Route: 042
     Dates: start: 20161216, end: 20170407
  6. ALBUMINAR-5 [Suspect]
     Active Substance: ALBUMIN HUMAN
     Dosage: UNK
     Route: 042
  7. CYTOGAM [Suspect]
     Active Substance: HUMAN CYTOMEGALOVIRUS IMMUNE GLOBULIN
     Dosage: UNK
     Route: 042
  8. BLINDED ALBUMIN 5% [Suspect]
     Active Substance: ALBUMIN HUMAN
     Dosage: UNK
     Route: 064
  9. BLINDED ALBUMIN 5% [Suspect]
     Active Substance: ALBUMIN HUMAN
     Indication: CYTOMEGALOVIRUS INFECTION
     Dosage: 178 ML, QMT
     Route: 042
     Dates: start: 20161216, end: 20170407

REACTIONS (4)
  - Caesarean section [Recovered/Resolved]
  - Umbilical cord vascular disorder [Recovered/Resolved]
  - Premature delivery [Unknown]
  - Vasa praevia [Recovered/Resolved]

NARRATIVE: CASE EVENT DATE: 20170303
